FAERS Safety Report 13008611 (Version 11)
Quarter: 2017Q3

REPORT INFORMATION
  Report Type: Spontaneous
  Country: US (occurrence: US)
  Receive Date: 20161208
  Receipt Date: 20170712
  Transmission Date: 20171127
  Serious: Yes (Other)
  Sender: FDA-Public Use
  Company Number: US-PFIZER INC-2016526523

PATIENT
  Age: 80 Year
  Sex: Male
  Weight: 94.8 kg

DRUGS (24)
  1. LYRICA [Concomitant]
     Active Substance: PREGABALIN
     Indication: NEURALGIA
     Dosage: 75 MG, 2X/DAY
     Route: 048
     Dates: start: 2012
  2. SIMVASTATIN. [Concomitant]
     Active Substance: SIMVASTATIN
     Dosage: 40 MG, DAILY
     Route: 048
     Dates: start: 1993
  3. METOPROLOL TARTRATE. [Concomitant]
     Active Substance: METOPROLOL TARTRATE
     Indication: HYPERTENSION
     Dosage: 25 MG, 2X/DAY
     Route: 048
     Dates: start: 2017
  4. PRILOSEC [Concomitant]
     Active Substance: OMEPRAZOLE MAGNESIUM
     Dosage: UNK
     Dates: end: 20161209
  5. LOSARTAN POTASSIUM. [Concomitant]
     Active Substance: LOSARTAN POTASSIUM
     Indication: HYPERTENSION
     Dosage: UNK (TAKE HALF TAB DAILY X 3 WEEKS AND THEN INCREASE 1 TAB DAILY)
     Dates: start: 2017
  6. LOSARTAN POTASSIUM. [Concomitant]
     Active Substance: LOSARTAN POTASSIUM
     Dosage: 50 MG, DAILY
     Dates: start: 2017
  7. CLONIDINE HCL [Concomitant]
     Active Substance: CLONIDINE HYDROCHLORIDE
     Indication: HYPERTENSION
     Dosage: 0.2 MG, AS NEEDED (DAILY)
     Route: 048
     Dates: end: 201704
  8. AMLODIPINE [Concomitant]
     Active Substance: AMLODIPINE BESYLATE
     Dosage: UNK
     Dates: start: 2017
  9. SUTENT [Suspect]
     Active Substance: SUNITINIB MALATE
     Indication: RENAL CELL CARCINOMA STAGE IV
     Dosage: 50 MG, CYCLIC (28 DAYS ON/14 DAYS OFF)
     Dates: start: 20161125
  10. LISINOPRIL. [Concomitant]
     Active Substance: LISINOPRIL
     Dosage: 20 MG, 2X/DAY
     Route: 048
     Dates: start: 2009
  11. LOSARTAN POTASSIUM. [Concomitant]
     Active Substance: LOSARTAN POTASSIUM
     Dosage: UNK
     Dates: end: 20161209
  12. FUROSEMIDE. [Concomitant]
     Active Substance: FUROSEMIDE
     Indication: FLUID RETENTION
     Dosage: 40 MG, AS NEEDED
     Dates: start: 201704
  13. CIALIS [Concomitant]
     Active Substance: TADALAFIL
     Dosage: 5 MG, AS NEEDED (1 TABLET PO QD PRN)
     Route: 048
     Dates: start: 2002
  14. PANTOPRAZOLE SODIUM. [Concomitant]
     Active Substance: PANTOPRAZOLE SODIUM
     Dosage: 40 MG, 1X/DAY
     Route: 048
     Dates: start: 2013
  15. IRON [Concomitant]
     Active Substance: IRON
     Indication: IRON DEFICIENCY
     Dosage: 2.7 MG, 1X/DAY
     Dates: start: 201705
  16. SUTENT [Suspect]
     Active Substance: SUNITINIB MALATE
     Dosage: 50 MG, CYCLIC (ONCE A DAY FOR 28 DAYS THEN 2 WEEKS OFF)
     Dates: end: 20170426
  17. SUTENT [Suspect]
     Active Substance: SUNITINIB MALATE
     Dosage: 50 MG, CYCLIC (2 WKS. ON DRUG 1 WK. OFF/ONCE A DAY)
     Dates: start: 201701
  18. LOSARTAN. [Concomitant]
     Active Substance: LOSARTAN
     Indication: HYPERTENSION
     Dosage: UNK (50MG TAB WITH POSSIBLE TAPER UP TO 100MG)
  19. SUTENT [Suspect]
     Active Substance: SUNITINIB MALATE
     Dosage: UNK, CYCLIC (2 WEEKS ON AND 1 WEEK OFF)
     Dates: start: 20170511
  20. LISINOPRIL. [Concomitant]
     Active Substance: LISINOPRIL
     Dosage: UNK
     Dates: end: 20161209
  21. SUTENT [Suspect]
     Active Substance: SUNITINIB MALATE
     Dosage: 1 DF, CYCLIC ONE EACH DAY X 4 WEEKS, REPEAT EVERY 6 WEEKS (4 WEEKS ON TREATMENT, THEN TWO WEEKS OFF)
     Route: 048
  22. METOPROLOL TARTRATE. [Concomitant]
     Active Substance: METOPROLOL TARTRATE
     Dosage: UNK, AS NEEDED [ONCE AS NEEDED WHEN TAKING SUTENT]
  23. PRILOSEC [Concomitant]
     Active Substance: OMEPRAZOLE MAGNESIUM
     Dosage: UNK
     Dates: start: 2017
  24. LOSARTAN. [Concomitant]
     Active Substance: LOSARTAN
     Dosage: UNK
     Dates: end: 20161209

REACTIONS (27)
  - Diarrhoea [Not Recovered/Not Resolved]
  - Memory impairment [Recovered/Resolved]
  - Aphonia [Not Recovered/Not Resolved]
  - Joint effusion [Unknown]
  - Hypertension [Not Recovered/Not Resolved]
  - Intentional product use issue [Unknown]
  - Pain in extremity [Not Recovered/Not Resolved]
  - Anorectal discomfort [Not Recovered/Not Resolved]
  - Weight increased [Recovered/Resolved]
  - Nasopharyngitis [Not Recovered/Not Resolved]
  - Fatigue [Unknown]
  - Condition aggravated [Not Recovered/Not Resolved]
  - Skin exfoliation [Not Recovered/Not Resolved]
  - Musculoskeletal pain [Not Recovered/Not Resolved]
  - Back pain [Not Recovered/Not Resolved]
  - Tremor [Not Recovered/Not Resolved]
  - Feeling hot [Unknown]
  - Gait disturbance [Not Recovered/Not Resolved]
  - Dysphonia [Unknown]
  - Deep vein thrombosis [Unknown]
  - Arthralgia [Not Recovered/Not Resolved]
  - Weight decreased [Recovered/Resolved]
  - Feeling abnormal [Not Recovered/Not Resolved]
  - Body temperature decreased [Unknown]
  - Dysgeusia [Not Recovered/Not Resolved]
  - Joint stiffness [Not Recovered/Not Resolved]
  - Myalgia [Not Recovered/Not Resolved]

NARRATIVE: CASE EVENT DATE: 2017
